FAERS Safety Report 15023321 (Version 1)
Quarter: 2018Q2

REPORT INFORMATION
  Report Type: Spontaneous
  Country: US (occurrence: US)
  Receive Date: 20180602
  Receipt Date: 20180602
  Transmission Date: 20180711
  Serious: Yes (Hospitalization)
  Sender: FDA-Public Use
  Company Number: None

PATIENT
  Age: 58 Year
  Sex: Male

DRUGS (1)
  1. LONSURF [Suspect]
     Active Substance: TIPIRACIL HYDROCHLORIDE\TRIFLURIDINE
     Indication: COLON CANCER
     Dosage: ?          OTHER FREQUENCY:BID DAYS 1-5, 8-12;?
     Route: 048
     Dates: start: 20180327, end: 20180529

REACTIONS (3)
  - Abdominal pain [None]
  - Infection [None]
  - Drug ineffective [None]

NARRATIVE: CASE EVENT DATE: 20180529
